FAERS Safety Report 9882362 (Version 3)
Quarter: 2014Q1

REPORT INFORMATION
  Report Type: Report from Study
  Country: NL (occurrence: NL)
  Receive Date: 20140207
  Receipt Date: 20140219
  Transmission Date: 20141002
  Serious: Yes (Hospitalization)
  Sender: FDA-Public Use
  Company Number: NL-GLAXOSMITHKLINE-B0849005B

PATIENT
  Age: 76 Year
  Sex: Male

DRUGS (10)
  1. PAZOPANIB [Suspect]
     Indication: RENAL CELL CARCINOMA
     Dosage: 400MG PER DAY
     Route: 048
     Dates: start: 20121008, end: 20140106
  2. EVEROLIMUS [Suspect]
     Indication: RENAL CELL CARCINOMA
     Dosage: 10MG PER DAY
     Dates: start: 20140107, end: 20140128
  3. INSULIN [Concomitant]
     Dosage: 8IU PER DAY
     Dates: start: 20140129
  4. METFORMINE [Concomitant]
     Dosage: 2G PER DAY
  5. GLIMEPIRIDE [Concomitant]
  6. PLAVIX [Concomitant]
     Dosage: 75MG PER DAY
  7. CARBASALAAT CALCIUM [Concomitant]
     Dosage: 100MG PER DAY
  8. ARIXTRA [Concomitant]
     Dosage: 2.5MG PER DAY
  9. METOPROLOL [Concomitant]
     Dosage: 50MG PER DAY
  10. DIOVAN [Concomitant]
     Dosage: 80MG TWICE PER DAY

REACTIONS (2)
  - Acute coronary syndrome [Recovered/Resolved]
  - Renal failure [Recovered/Resolved]
